FAERS Safety Report 5496705-4 (Version None)
Quarter: 2007Q4

REPORT INFORMATION
  Report Type: 
  Country: None (occurrence: None)
  Receive Date: 20071025
  Receipt Date: 20070706
  Transmission Date: 20080405
  Serious: Yes (Hospitalization)
  Sender: FDA-Public Use
  Company Number: A0662188A

PATIENT
  Age: 69 Year
  Sex: Male

DRUGS (22)
  1. ADVAIR DISKUS 100/50 [Suspect]
     Indication: CHRONIC OBSTRUCTIVE PULMONARY DISEASE
     Dosage: 1PUFF TWICE PER DAY
     Route: 055
  2. ALPHAGAN [Concomitant]
  3. ACYCLOVIR [Concomitant]
  4. ALLOPURINOL [Concomitant]
  5. XOPENEX [Concomitant]
  6. CELEBREX [Concomitant]
  7. ATENOLOL [Concomitant]
  8. DIGITEK [Concomitant]
  9. FLOMAX [Concomitant]
  10. ALLEGRA [Concomitant]
  11. LASIX [Concomitant]
  12. NITROGLYCERIN [Concomitant]
  13. OXYGEN [Concomitant]
  14. POTASSIUM CHLORIDE [Concomitant]
  15. PROVENTIL [Concomitant]
  16. VIAGRA [Concomitant]
  17. VYTORIN [Concomitant]
  18. WARFARIN SODIUM [Concomitant]
  19. CALCIUM [Concomitant]
  20. VITAMIN D [Concomitant]
  21. ASCORBIC ACID [Concomitant]
  22. SULFAMETHOXAZOLE AND TRIMETHOPRIM [Concomitant]
     Route: 042

REACTIONS (1)
  - PNEUMONIA [None]
